FAERS Safety Report 9257568 (Version 1)
Quarter: 2013Q2

REPORT INFORMATION
  Report Type: Spontaneous
  Country: NZ (occurrence: NZ)
  Receive Date: 20130426
  Receipt Date: 20130426
  Transmission Date: 20140414
  Serious: Yes (Hospitalization)
  Sender: FDA-Public Use
  Company Number: NZ-PFIZER INC-2013124200

PATIENT
  Age: 48 Year
  Sex: Male

DRUGS (2)
  1. AVIGRA [Suspect]
     Indication: ERECTILE DYSFUNCTION
     Dosage: UNK
  2. FLUOXETINE [Concomitant]
     Indication: DEPRESSION
     Dosage: UNK

REACTIONS (1)
  - Supraventricular tachycardia [Unknown]
